FAERS Safety Report 8610579-1 (Version None)
Quarter: 2012Q3

REPORT INFORMATION
  Report Type: 
  Country: None (occurrence: None)
  Receive Date: 20120822
  Receipt Date: 20120815
  Transmission Date: 20120928
  Serious: Yes (Hospitalization)
  Sender: FDA-Public Use
  Company Number: BR-US-EMD SERONO, INC.-7145321

PATIENT
  Sex: Female

DRUGS (6)
  1. ISONIAZID [Concomitant]
     Dates: start: 20120101
  2. REBIF [Suspect]
     Indication: RELAPSING-REMITTING MULTIPLE SCLEROSIS
     Dates: start: 20100601
  3. TANDRILAX [Concomitant]
     Indication: PRODUCT USED FOR UNKNOWN INDICATION
     Dates: start: 20110201
  4. ISONIAZID [Concomitant]
     Indication: TUBERCULOSIS
     Dates: start: 20090401
  5. OXICARBAMAZEPINE (OXCARBAZEPINE) [Concomitant]
     Indication: PRODUCT USED FOR UNKNOWN INDICATION
     Dates: start: 20110201
  6. VENLAFAXINE [Concomitant]
     Indication: PRODUCT USED FOR UNKNOWN INDICATION
     Dates: start: 20110201

REACTIONS (5)
  - LUNG NEOPLASM [None]
  - HEPATIC NEOPLASM [None]
  - CENTRAL NERVOUS SYSTEM LESION [None]
  - SEPSIS [None]
  - MULTIPLE SCLEROSIS RELAPSE [None]
